FAERS Safety Report 4672680-7 (Version None)
Quarter: 2005Q2

REPORT INFORMATION
  Report Type: 
  Country: None (occurrence: None)
  Receive Date: 20050524
  Receipt Date: 20050517
  Transmission Date: 20051028
  Serious: Yes (Other)
  Sender: FDA-Public Use
  Company Number: US-BRISTOL-MYERS SQUIBB COMPANY-12971438

PATIENT
  Age: 69 Year
  Sex: Male
  Weight: 63 kg

DRUGS (6)
  1. CETUXIMAB [Suspect]
     Indication: NEOPLASM MALIGNANT
     Dosage: COURSE 7. THERAPY START DATE 13-JAN-05, GIVEN AT 400 MG/M2 LOAD DOSE WK 1, THEN 450 MG WEEK 2-7.
     Dates: start: 20050223, end: 20050223
  2. CISPLATIN [Suspect]
     Indication: NEOPLASM MALIGNANT
     Dosage: COURSE 7. GIVEN AT 54 MG/WEEK WEEKS 2-7. START DATE 1ST COURSE 13-JAN-05.
     Dates: start: 20050223, end: 20050223
  3. RADIATION THERAPY [Suspect]
     Dosage: COURSE 7, GIVEN 5 DAYS/WEEK COURSE 2-7 AT 60GY (30 FRACTIONS). COURSE 1 START DATE 13-JAN-05.
     Dates: start: 20050303, end: 20050303
  4. NORMODYNE [Concomitant]
  5. PROCARDIA [Concomitant]
  6. SYNTHROID [Concomitant]

REACTIONS (3)
  - HYPOTHYROIDISM [None]
  - SKIN TOXICITY [None]
  - STAPHYLOCOCCAL INFECTION [None]
